FAERS Safety Report 6659521-3 (Version None)
Quarter: 2010Q1

REPORT INFORMATION
  Report Type: 
  Country: None (occurrence: None)
  Receive Date: 20100330
  Receipt Date: 20100313
  Transmission Date: 20100710
  Serious: Yes (Hospitalization, Disabling)
  Sender: FDA-Public Use
  Company Number: US-JNJFOC-20090307008

PATIENT
  Age: 64 Year
  Sex: Female
  Weight: 92.99 kg

DRUGS (6)
  1. LEVAQUIN [Suspect]
     Indication: DIVERTICULITIS
     Route: 048
  2. METRONIDAZOLE [Concomitant]
     Indication: DIVERTICULITIS
  3. LIPITOR [Concomitant]
  4. PROZAC [Concomitant]
  5. FOSAMAX [Concomitant]
  6. ALLEGRA [Concomitant]

REACTIONS (2)
  - DRUG PRESCRIBING ERROR [None]
  - ROTATOR CUFF SYNDROME [None]
